FAERS Safety Report 18032881 (Version 1)
Quarter: 2020Q3

REPORT INFORMATION
  Report Type: Spontaneous
  Country: ES (occurrence: ES)
  Receive Date: 20200716
  Receipt Date: 20200716
  Transmission Date: 20201103
  Serious: Yes (Other)
  Sender: FDA-Public Use
  Company Number: ES-MYLANLABS-2020M1063869

PATIENT
  Age: 5 Year
  Sex: Female
  Weight: 17.8 kg

DRUGS (1)
  1. DALSY 20 MG/ML SUSPENSI?N ORAL [Suspect]
     Active Substance: IBUPROFEN
     Indication: PYREXIA
     Dosage: 5 MILLILITER, QD
     Route: 048
     Dates: start: 20160202

REACTIONS (1)
  - Hypothermia [Recovered/Resolved]

NARRATIVE: CASE EVENT DATE: 20160203
